FAERS Safety Report 6250183-6 (Version None)
Quarter: 2009Q2

REPORT INFORMATION
  Report Type: 
  Country: None (occurrence: None)
  Receive Date: 20090626
  Receipt Date: 20090609
  Transmission Date: 20091009
  Serious: Yes (Hospitalization)
  Sender: FDA-Public Use
  Company Number: US-DEXPHARM-20090506

PATIENT
  Sex: Male
  Weight: 65 kg

DRUGS (11)
  1. OMEPRAZOLE [Suspect]
     Indication: GASTROOESOPHAGEAL REFLUX DISEASE
     Dosage: 20 MG ONCE A DAY,ORAL
     Route: 048
     Dates: end: 20080315
  2. DILTIAZAM [Concomitant]
  3. BUMETANDINE [Concomitant]
  4. UROXATRAL [Concomitant]
  5. LOVASTATIN [Concomitant]
  6. LYRICA [Concomitant]
  7. ADENDRONATE [Concomitant]
  8. PREDNISONE TAB [Concomitant]
  9. LUTRON (EXPERIMENTAL DRUG) [Concomitant]
  10. JANUVLA (SITAGLIPTIN PHOSPHATE) [Concomitant]
  11. ASPIRIN [Concomitant]

REACTIONS (12)
  - ANAEMIA [None]
  - CHRONIC OBSTRUCTIVE PULMONARY DISEASE [None]
  - CONDITION AGGRAVATED [None]
  - DISEASE PROGRESSION [None]
  - GASTRITIS [None]
  - GASTROOESOPHAGEAL REFLUX DISEASE [None]
  - HYPOXIA [None]
  - INTERSTITIAL LUNG DISEASE [None]
  - OCCULT BLOOD POSITIVE [None]
  - SYNCOPE [None]
  - ULCER [None]
  - UPPER GASTROINTESTINAL HAEMORRHAGE [None]
